FAERS Safety Report 13841202 (Version 1)
Quarter: 2017Q3

REPORT INFORMATION
  Report Type: Spontaneous
  Country: US (occurrence: US)
  Receive Date: 20170807
  Receipt Date: 20170807
  Transmission Date: 20171127
  Serious: No
  Sender: FDA-Public Use
  Company Number: GXBR2017US002227

PATIENT
  Sex: Female
  Weight: 63.39 kg

DRUGS (3)
  1. ALPRAZOLAM TABLETS USP [Suspect]
     Active Substance: ALPRAZOLAM
     Dosage: 0.5 DF, QD
     Route: 048
  2. ZANAFLEX [Concomitant]
     Active Substance: TIZANIDINE HYDROCHLORIDE
     Indication: MYALGIA
     Dosage: 4 MG, UNK
     Route: 048
     Dates: start: 2003
  3. ALPRAZOLAM TABLETS USP [Suspect]
     Active Substance: ALPRAZOLAM
     Indication: PRODUCT USED FOR UNKNOWN INDICATION
     Dosage: 2 DF, QHS
     Route: 048
     Dates: start: 20170612

REACTIONS (1)
  - Headache [Unknown]
